FAERS Safety Report 7278720-3 (Version None)
Quarter: 2011Q1

REPORT INFORMATION
  Report Type: 
  Country: None (occurrence: None)
  Receive Date: 20110207
  Receipt Date: 20110126
  Transmission Date: 20110831
  Serious: Yes (Hospitalization)
  Sender: FDA-Public Use
  Company Number: PHHY2011BR07029

PATIENT
  Sex: Male

DRUGS (3)
  1. SPIRONOLACTONE [Concomitant]
     Indication: HYPERTENSION
     Dosage: 50 MG, QD
     Route: 048
  2. AMLODIPINE BESYLATE [Suspect]
     Indication: HYPERTENSION
     Dosage: 10 MG, QD
     Route: 048
  3. RASILEZ (ALISKIREN FUMARATE) [Concomitant]
     Indication: HYPERTENSION
     Dosage: 1 DF, IN MORNING
     Route: 048
     Dates: end: 20110123

REACTIONS (5)
  - MALAISE [None]
  - DRUG INEFFECTIVE [None]
  - BLOOD PRESSURE INCREASED [None]
  - HEADACHE [None]
  - IRRITABILITY [None]
